FAERS Safety Report 12743189 (Version 1)
Quarter: 2016Q3

REPORT INFORMATION
  Report Type: Spontaneous
  Country: SE (occurrence: SE)
  Receive Date: 20160914
  Receipt Date: 20160914
  Transmission Date: 20161109
  Serious: Yes (Hospitalization)
  Sender: FDA-Public Use
  Company Number: SE-TEVA-690599ACC

PATIENT
  Age: 44 Year
  Sex: Female

DRUGS (4)
  1. STESOLID [Suspect]
     Active Substance: DIAZEPAM
     Dates: start: 20160808, end: 20160808
  2. IMOVANE [Suspect]
     Active Substance: ZOPICLONE
     Dates: start: 20160808, end: 20160808
  3. WARAN [Concomitant]
     Active Substance: WARFARIN SODIUM
  4. ATARAX [Suspect]
     Active Substance: HYDROXYZINE\HYDROXYZINE HYDROCHLORIDE
     Dosage: TOOK 7-10 PIECES EACH OF 10 OR 25 MG
     Dates: start: 20160808, end: 20160808

REACTIONS (2)
  - Suicidal ideation [Recovered/Resolved]
  - Toxicity to various agents [Recovered/Resolved]

NARRATIVE: CASE EVENT DATE: 20160808
